FAERS Safety Report 8458638-0 (Version None)
Quarter: 2012Q2

REPORT INFORMATION
  Report Type: 
  Country: None (occurrence: None)
  Receive Date: 20120622
  Receipt Date: 20120614
  Transmission Date: 20120825
  Serious: Yes (Hospitalization)
  Sender: FDA-Public Use
  Company Number: JP-EISAI INC-E7389-02576-CLI-JP

PATIENT
  Age: 60 Year
  Sex: Female
  Weight: 52 kg

DRUGS (4)
  1. HALAVEN [Suspect]
     Indication: METASTASES TO LUNG
     Route: 041
     Dates: start: 20110816, end: 20111011
  2. CELEBREX [Concomitant]
     Route: 048
  3. HALAVEN [Suspect]
     Route: 041
     Dates: start: 20111101, end: 20111129
  4. OXYCONTIN [Concomitant]
     Route: 048

REACTIONS (1)
  - PNEUMONIA [None]
